FAERS Safety Report 6310954-4 (Version None)
Quarter: 2009Q3

REPORT INFORMATION
  Report Type: 
  Country: None (occurrence: None)
  Receive Date: 20090817
  Receipt Date: 20090813
  Transmission Date: 20100115
  Serious: Yes (Hospitalization)
  Sender: FDA-Public Use
  Company Number: US-BIOGENIDEC-2009BI017554

PATIENT
  Age: 53 Year
  Sex: Male

DRUGS (4)
  1. TYSABRI [Suspect]
     Indication: MULTIPLE SCLEROSIS
     Route: 042
     Dates: start: 20070419
  2. BACLOFEN [Concomitant]
     Indication: MUSCLE SPASTICITY
     Route: 037
  3. BACLOFEN [Concomitant]
     Route: 048
  4. OXYBUTYNIN [Concomitant]
     Indication: URINARY TRACT DISORDER
     Route: 048

REACTIONS (1)
  - MENINGITIS [None]
